FAERS Safety Report 24280584 (Version 2)
Quarter: 2024Q3

REPORT INFORMATION
  Report Type: Spontaneous
  Country: AT (occurrence: AT)
  Receive Date: 20240904
  Receipt Date: 20240916
  Transmission Date: 20241016
  Serious: Yes (Hospitalization)
  Sender: TEVA
  Company Number: AT-TEVA-VS-3239244

PATIENT
  Age: 60 Year
  Sex: Female
  Weight: 75 kg

DRUGS (1)
  1. HYDROMORPHONE [Suspect]
     Active Substance: HYDROMORPHONE
     Indication: Bone pain
     Route: 048

REACTIONS (2)
  - Delirium [Unknown]
  - Stress cardiomyopathy [Unknown]
